FAERS Safety Report 9348180 (Version 1)
Quarter: 2013Q2

REPORT INFORMATION
  Report Type: Spontaneous
  Country: US (occurrence: None)
  Receive Date: 20130612
  Receipt Date: 20130612
  Transmission Date: 20140414
  Serious: Yes (Hospitalization)
  Sender: FDA-Public Use
  Company Number: None

PATIENT
  Age: 81 Year
  Sex: Female
  Weight: 62.6 kg

DRUGS (5)
  1. XARELTO [Suspect]
     Indication: ATRIAL FIBRILLATION
     Route: 048
  2. NITROGLYCERIN SLOCAPS [Concomitant]
  3. VITAMIN D [Concomitant]
  4. DILTIAZEM CR [Concomitant]
  5. OXYCODONE [Concomitant]

REACTIONS (1)
  - Abdominal wall haematoma [None]
